FAERS Safety Report 24041589 (Version 9)
Quarter: 2025Q4

REPORT INFORMATION
  Report Type: Report from Study
  Country: CN (occurrence: CN)
  Receive Date: 20240702
  Receipt Date: 20251001
  Transmission Date: 20260117
  Serious: Yes (Life-Threatening, Other)
  Sender: ROCHE
  Company Number: CN-ROCHE-3489251

PATIENT
  Age: 41 Year
  Sex: Male
  Weight: 61.3 kg

DRUGS (75)
  1. POLATUZUMAB VEDOTIN [Suspect]
     Active Substance: POLATUZUMAB VEDOTIN
     Indication: Diffuse large B-cell lymphoma
     Route: 042
     Dates: start: 20231005, end: 20231005
  2. POLATUZUMAB VEDOTIN [Suspect]
     Active Substance: POLATUZUMAB VEDOTIN
     Route: 042
     Dates: start: 20231025, end: 20231025
  3. RITUXIMAB [Suspect]
     Active Substance: RITUXIMAB
     Indication: Diffuse large B-cell lymphoma
     Route: 042
  4. TUCIDINOSTAT [Suspect]
     Active Substance: TUCIDINOSTAT
     Indication: Diffuse large B-cell lymphoma
     Dosage: START DATE : 25-OCT-2023
     Route: 048
     Dates: end: 20231125
  5. VENETOCLAX [Suspect]
     Active Substance: VENETOCLAX
     Indication: Diffuse large B-cell lymphoma
     Dosage: START AND DATE: 25-OCT-2025
     Route: 048
     Dates: end: 20231025
  6. CYCLOPHOSPHAMIDE [Suspect]
     Active Substance: CYCLOPHOSPHAMIDE
     Indication: Diffuse large B-cell lymphoma
     Route: 042
     Dates: start: 20231005, end: 20231007
  7. CYCLOPHOSPHAMIDE [Suspect]
     Active Substance: CYCLOPHOSPHAMIDE
     Route: 042
     Dates: start: 20231025, end: 20231027
  8. ETOPOSIDE [Suspect]
     Active Substance: ETOPOSIDE
     Indication: Diffuse large B-cell lymphoma
     Route: 042
     Dates: start: 20231005, end: 20231007
  9. ETOPOSIDE [Suspect]
     Active Substance: ETOPOSIDE
     Route: 042
     Dates: start: 20231025, end: 20231027
  10. CARBOPLATIN [Suspect]
     Active Substance: CARBOPLATIN
     Indication: Diffuse large B-cell lymphoma
     Route: 042
     Dates: start: 20231006, end: 20231006
  11. CARBOPLATIN [Suspect]
     Active Substance: CARBOPLATIN
     Route: 042
     Dates: start: 20231025, end: 20231025
  12. VITAMINS [Concomitant]
     Active Substance: VITAMINS
     Route: 042
  13. Water soluble vitamins for injection [Concomitant]
     Route: 042
  14. Human insulin inj [Concomitant]
     Route: 042
  15. Compound potassium hydrogen phosphate injection [Concomitant]
  16. Medium and Long Chain Fat Emulsion Injection (C8?24Ve) [Concomitant]
  17. Levi (multiple trace element injection) [Concomitant]
  18. Levi (multiple trace element injection) [Concomitant]
  19. Compound amino acid injection(18AA-?) [Concomitant]
  20. MAGNESIUM SULFATE [Concomitant]
     Active Substance: MAGNESIUM SULFATE
  21. METRONIDAZOLE\SODIUM CHLORIDE [Concomitant]
     Active Substance: METRONIDAZOLE\SODIUM CHLORIDE
  22. METRONIDAZOLE\SODIUM CHLORIDE [Concomitant]
     Active Substance: METRONIDAZOLE\SODIUM CHLORIDE
  23. VANCOMYCIN HYDROCHLORIDE [Concomitant]
     Active Substance: VANCOMYCIN HYDROCHLORIDE
  24. DEXTROSE [Concomitant]
     Active Substance: DEXTROSE MONOHYDRATE
  25. Imipenem and cilastatin sodium salt injection [Concomitant]
  26. Imipenem and cilastatin sodium salt injection [Concomitant]
  27. ALPRAZOLAM [Concomitant]
     Active Substance: ALPRAZOLAM
     Indication: Sedation
  28. ALPRAZOLAM [Concomitant]
     Active Substance: ALPRAZOLAM
     Indication: Hypnotherapy
  29. 5g intravenous human immunoglobulin [Concomitant]
  30. Ondansetron Hydrochloride Injection [Concomitant]
  31. Fluconazole sodium chloride injection [Concomitant]
  32. Omeprazole sodium for injection [Concomitant]
  33. METHYLPREDNISOLONE SODIUM SUCCINATE [Concomitant]
     Active Substance: METHYLPREDNISOLONE SODIUM SUCCINATE
     Route: 042
     Dates: start: 20231009, end: 20231009
  34. Indometacin suppository [Concomitant]
  35. Light liquid paraffin [Concomitant]
  36. DEXAMETHASONE SODIUM PHOSPHATE [Concomitant]
     Active Substance: DEXAMETHASONE SODIUM PHOSPHATE
  37. FENTANYL TRANSDERMAL SYSTEM [Concomitant]
     Active Substance: FENTANYL
  38. Compound acetaminophen Tablets (II) [Concomitant]
  39. Promethazine hydrochloride inj [Concomitant]
     Route: 030
     Dates: start: 20231005, end: 20231005
  40. Pethidine hydrochloride injection [Concomitant]
  41. Potassium chloride injection 10% [Concomitant]
  42. Montmorillonite powder [Concomitant]
  43. Recombinant human thrombopoietin injection [Concomitant]
  44. SODIUM CHLORIDE [Concomitant]
     Active Substance: SODIUM CHLORIDE
  45. METOCLOPRAMIDE HYDROCHLORIDE [Concomitant]
     Active Substance: METOCLOPRAMIDE HYDROCHLORIDE
  46. Levofloxacin sodium chloride injection [Concomitant]
  47. CASPOFUNGIN ACETATE [Concomitant]
     Active Substance: CASPOFUNGIN ACETATE
  48. Berberine Hydrochloride Tablets [Concomitant]
  49. morphine hydrochloride injection [Concomitant]
  50. Etamsylate Injection [Concomitant]
  51. VORICONAZOLE [Concomitant]
     Active Substance: VORICONAZOLE
  52. ESOMEPRAZOLE SODIUM [Concomitant]
     Active Substance: ESOMEPRAZOLE SODIUM
  53. Thrombin powder [Concomitant]
  54. AMIKACIN SULFATE [Concomitant]
     Active Substance: AMIKACIN SULFATE
  55. ALBUMIN HUMAN [Concomitant]
     Active Substance: ALBUMIN HUMAN
  56. Amphotericin B cholesterol sulfate complex for injection [Concomitant]
  57. Cefoperazone sodium sulbactam sodium needle [Concomitant]
  58. AMBROXOL HYDROCHLORIDE [Concomitant]
     Active Substance: AMBROXOL HYDROCHLORIDE
  59. urokinase for injection [Concomitant]
  60. MESNA [Concomitant]
     Active Substance: MESNA
  61. Linezolid and Glucose Injection [Concomitant]
  62. Compound Paracetamol Tablets [Concomitant]
  63. Tylenol (imipenem cilastatin sodium salt injection) [Concomitant]
  64. Berberino hidrochlorido [Concomitant]
  65. MOLGRAMOSTIM [Concomitant]
     Active Substance: MOLGRAMOSTIM
  66. Xinhuang tablet [Concomitant]
  67. UREA [Concomitant]
     Active Substance: UREA
  68. Dimethicone Powder [Concomitant]
  69. FUROSEMIDE [Concomitant]
     Active Substance: FUROSEMIDE
  70. Human granulocyte-stimulating factor injection [Concomitant]
  71. Recombinant human thrombopoietin injection [Concomitant]
  72. MEROPENEM [Concomitant]
     Active Substance: MEROPENEM
  73. Pegylated recombinant human granulocyte stimulating factor injection [Concomitant]
  74. Ceftizoxime Sodium for Injection [Concomitant]
  75. Berberino hidrochlorido tablet?s [Concomitant]

REACTIONS (20)
  - Febrile infection [Recovered/Resolved]
  - Malnutrition [Not Recovered/Not Resolved]
  - Cough [Not Recovered/Not Resolved]
  - Abdominal pain [Not Recovered/Not Resolved]
  - Diarrhoea [Recovered/Resolved]
  - Hypokalaemia [Recovered/Resolved]
  - Hypophosphataemia [Recovered/Resolved]
  - Hypomagnesaemia [Recovered/Resolved]
  - Hypoproteinaemia [Recovered/Resolved]
  - Anaemia [Not Recovered/Not Resolved]
  - Hypocalcaemia [Recovered/Resolved]
  - Hepatitis B e antibody positive [Not Recovered/Not Resolved]
  - White blood cell count decreased [Recovered/Resolved]
  - Platelet count decreased [Recovered/Resolved]
  - Gamma-glutamyltransferase increased [Recovered/Resolved]
  - Blood alkaline phosphatase increased [Recovered/Resolved]
  - Intestinal obstruction [Not Recovered/Not Resolved]
  - Pneumonia pseudomonal [Not Recovered/Not Resolved]
  - Malnutrition [Recovered/Resolved]
  - Granulocyte count decreased [Recovered/Resolved]

NARRATIVE: CASE EVENT DATE: 20231006
